FAERS Safety Report 11414604 (Version 1)
Quarter: 2015Q3

REPORT INFORMATION
  Report Type: Spontaneous
  Country: FR (occurrence: FR)
  Receive Date: 20150825
  Receipt Date: 20150825
  Transmission Date: 20151125
  Serious: Yes (Hospitalization)
  Sender: FDA-Public Use
  Company Number: FR-AMGEN-FRASP2015085599

PATIENT
  Age: 72 Year
  Sex: Male

DRUGS (13)
  1. HEPARIN SODIUM. [Suspect]
     Active Substance: HEPARIN SODIUM
     Indication: PRODUCT USED FOR UNKNOWN INDICATION
     Dosage: 1600 IU, 1 IN 1CYCLE
     Route: 042
     Dates: start: 20150630, end: 20150720
  2. CEFTRIAXONE PANPHARMA [Suspect]
     Active Substance: CEFTRIAXONE
     Indication: OSTEITIS
     Dosage: 1 G, 1 IN 2 DAYS
     Route: 042
     Dates: start: 20150626, end: 20150721
  3. NERISONE [Concomitant]
     Active Substance: DIFLUCORTOLONE VALERATE
     Dosage: UNK
  4. LASILIX                            /00032601/ [Concomitant]
     Active Substance: FUROSEMIDE
     Dosage: UNK
  5. AERIUS [Concomitant]
     Active Substance: DESLORATADINE
  6. LANTUS [Suspect]
     Active Substance: INSULIN GLARGINE
     Indication: DIABETES MELLITUS
     Dosage: 20 UNIT, 1 IN 1 DAY
     Route: 058
     Dates: start: 20150717, end: 20150721
  7. AMLODIPINE [Concomitant]
     Active Substance: AMLODIPINE BESYLATE
     Indication: HYPERTENSION
     Dosage: 5 MG, UNK
     Dates: start: 20150630
  8. ARANESP [Suspect]
     Active Substance: DARBEPOETIN ALFA
     Indication: NEPHROGENIC ANAEMIA
     Dosage: 1 DF, QWK
     Route: 042
     Dates: start: 20150706, end: 20150720
  9. ESIDREX [Suspect]
     Active Substance: HYDROCHLOROTHIAZIDE
     Indication: HYPERTENSION
     Dosage: 25 MG, 1 IN 1 DAY
     Route: 048
     Dates: start: 20150710, end: 20150727
  10. XATRAL [Suspect]
     Active Substance: ALFUZOSIN
     Indication: BENIGN PROSTATIC HYPERPLASIA
     Dosage: 1 DF, 1 IN 1 DAY
     Route: 047
     Dates: start: 20150702, end: 20150729
  11. OROZAMUDOL [Concomitant]
     Active Substance: TRAMADOL
     Dosage: UNK
  12. OFLOXACINE MERCK [Suspect]
     Active Substance: OFLOXACIN
     Indication: OSTEITIS
     Dosage: 1 DF, 1 IN 1 DAY
     Route: 048
     Dates: start: 20150703, end: 20150721
  13. RENAGEL [Concomitant]
     Active Substance: SEVELAMER HYDROCHLORIDE
     Dosage: UNK
     Dates: start: 20150703

REACTIONS (1)
  - Rash maculo-papular [Recovering/Resolving]

NARRATIVE: CASE EVENT DATE: 20150719
